FAERS Safety Report 16123442 (Version 2)
Quarter: 2019Q2

REPORT INFORMATION
  Report Type: Report from Study
  Country: DE (occurrence: DE)
  Receive Date: 20190327
  Receipt Date: 20190403
  Transmission Date: 20190711
  Serious: Yes (Other)
  Sender: FDA-Public Use
  Company Number: GXKR2017DE001596

PATIENT
  Sex: Male

DRUGS (9)
  1. VIGANTOLETTEN [Concomitant]
     Active Substance: CHOLECALCIFEROL
     Indication: HEREDITARY HYPOPHOSPHATAEMIC RICKETS
  2. NATRIUMGLYCEROPHOSPHAT [Concomitant]
     Indication: PHOSPHORUS METABOLISM DISORDER
     Dosage: (4X) 5 ML, QD
     Route: 048
     Dates: start: 20081013, end: 20170817
  3. EINSALPHA [Concomitant]
     Indication: PHOSPHORUS METABOLISM DISORDER
     Dosage: 2 UG/ML, UNK
     Route: 048
     Dates: start: 20120124, end: 20170824
  4. VIGANTOLETTEN [Concomitant]
     Active Substance: CHOLECALCIFEROL
     Indication: PROPHYLAXIS
     Dosage: 1 DF, QD
     Route: 048
     Dates: start: 20081013, end: 20131128
  5. ROCALTROL [Concomitant]
     Active Substance: CALCITRIOL
     Indication: PROPHYLAXIS
     Dosage: 0.2 UG, QD
     Route: 048
     Dates: start: 20090129, end: 20111020
  6. MIMPARA [Concomitant]
     Active Substance: CINACALCET HYDROCHLORIDE
     Indication: PROPHYLAXIS
     Dosage: 10 MG, QD
     Route: 048
     Dates: start: 20100204, end: 20170824
  7. BUROSUMAB [Concomitant]
     Active Substance: BUROSUMAB
     Indication: PHOSPHORUS METABOLISM DISORDER
     Dosage: 20 MG, EVERY 14 DAYS
     Route: 058
     Dates: start: 20170824
  8. OMNITROPE [Suspect]
     Active Substance: SOMATROPIN
     Indication: X-LINKED CHROMOSOMAL DISORDER
     Dosage: 1.8 MG, QD (10 MG/1.5 ML SOLUTION FOR INJECTION)
     Route: 058
     Dates: start: 20100909, end: 201701
  9. LECITHIN [Concomitant]
     Active Substance: LECITHIN
     Indication: PROPHYLAXIS
     Dosage: UNK
     Route: 048
     Dates: start: 20130320, end: 20170824

REACTIONS (2)
  - Idiopathic intracranial hypertension [Not Recovered/Not Resolved]
  - Headache [Not Recovered/Not Resolved]

NARRATIVE: CASE EVENT DATE: 20160815
